FAERS Safety Report 10429676 (Version 1)
Quarter: 2014Q3

REPORT INFORMATION
  Report Type: Spontaneous
  Country: US (occurrence: US)
  Receive Date: 20140904
  Receipt Date: 20140904
  Transmission Date: 20150326
  Serious: Yes (Other)
  Sender: FDA-Public Use
  Company Number: PHEH2014US017539

PATIENT
  Sex: Male

DRUGS (3)
  1. BYSTOLIC [Concomitant]
     Active Substance: NEBIVOLOL HYDROCHLORIDE
     Dosage: 10 MG, QD
  2. HYDROCHLOROTHIAZIDE. [Concomitant]
     Active Substance: HYDROCHLOROTHIAZIDE
     Dosage: UNK UKN, UNK
  3. TEKTURNA [Suspect]
     Active Substance: ALISKIREN HEMIFUMARATE
     Dosage: 325 MG, QD

REACTIONS (8)
  - Haemorrhage [Unknown]
  - Diabetic nephropathy [Unknown]
  - Accelerated hypertension [Unknown]
  - Intra-abdominal pressure increased [Unknown]
  - Haematocrit decreased [Unknown]
  - Nephrotic syndrome [Unknown]
  - Renal failure chronic [Unknown]
  - Glomerulosclerosis [Unknown]
